FAERS Safety Report 20878208 (Version 1)
Quarter: 2022Q2

REPORT INFORMATION
  Report Type: Spontaneous
  Country: US (occurrence: None)
  Receive Date: 20220526
  Receipt Date: 20220526
  Transmission Date: 20220721
  Serious: Yes (Death)
  Sender: FDA-Public Use
  Company Number: None

PATIENT
  Sex: Male

DRUGS (6)
  1. TETRABENAZINE [Suspect]
     Active Substance: TETRABENAZINE
     Indication: Chorea
     Dosage: TAKE 1/2 TABLET BY MOUTH DAILY X 1 WEEK, 1/2 TAB TWICE DAILY X 1 WEEK, 1/2 TAB IN AM AND 1 TAB IN PM
     Route: 048
     Dates: start: 20220216, end: 20220216
  2. KP VITAMIN D [Concomitant]
  3. MAGNESIUM [Concomitant]
  4. VITAMIN B12 [Concomitant]
     Active Substance: CYANOCOBALAMIN
  5. VITAMIN C [Concomitant]
     Active Substance: ASCORBIC ACID
  6. ZINC [Concomitant]
     Active Substance: ZINC

REACTIONS (1)
  - Death [None]
